FAERS Safety Report 7673996-2 (Version None)
Quarter: 2011Q3

REPORT INFORMATION
  Report Type: 
  Country: None (occurrence: None)
  Receive Date: 20110810
  Receipt Date: 20110304
  Transmission Date: 20111222
  Serious: No
  Sender: FDA-Public Use
  Company Number: US-GLAXOSMITHKLINE-A0916759A

PATIENT
  Age: 53 Year
  Sex: Female

DRUGS (4)
  1. PAXIL [Suspect]
     Indication: DEPRESSION
     Dosage: 50MG PER DAY
     Route: 048
     Dates: start: 20110226
  2. LORAZEPAM [Concomitant]
  3. B COMPLEX VITAMINS [Concomitant]
  4. LOVAZA [Concomitant]

REACTIONS (2)
  - INSOMNIA [None]
  - ANXIETY [None]
